FAERS Safety Report 21964754 (Version 5)
Quarter: 2025Q4

REPORT INFORMATION
  Report Type: Report from Study
  Country: US (occurrence: US)
  Receive Date: 20230207
  Receipt Date: 20251017
  Transmission Date: 20260118
  Serious: Yes (Hospitalization, Other)
  Sender: TAKEDA
  Company Number: US-TAKEDA-US202016699

PATIENT
  Age: 76 Year
  Sex: Female

DRUGS (12)
  1. HUMAN IMMUNOGLOBULIN G [Suspect]
     Active Substance: HUMAN IMMUNOGLOBULIN G
     Indication: Immunodeficiency common variable
     Dosage: UNK
  2. HUMAN IMMUNOGLOBULIN G [Suspect]
     Active Substance: HUMAN IMMUNOGLOBULIN G
     Indication: Primary immunodeficiency syndrome
     Dosage: 20 GRAM
  3. HUMAN IMMUNOGLOBULIN G [Suspect]
     Active Substance: HUMAN IMMUNOGLOBULIN G
     Dosage: 20 GRAM
  4. HUMAN IMMUNOGLOBULIN G [Suspect]
     Active Substance: HUMAN IMMUNOGLOBULIN G
     Dosage: UNK
  5. SALINE [Concomitant]
     Active Substance: SODIUM CHLORIDE
     Dosage: UNK
  6. TEMAZEPAM [Concomitant]
     Active Substance: TEMAZEPAM
     Indication: Sleep disorder
     Dosage: UNK
  7. VITAMIN C [Concomitant]
     Active Substance: ASCORBIC ACID
     Dosage: UNK
  8. CALCIUM [Concomitant]
     Active Substance: CALCIUM
     Dosage: UNK
  9. FISH OIL [Concomitant]
     Active Substance: FISH OIL
     Dosage: UNK
  10. VITAMIN D3 [Concomitant]
     Active Substance: CHOLECALCIFEROL
     Dosage: UNK
  11. TYLENOL [Concomitant]
     Active Substance: ACETAMINOPHEN
     Indication: Premedication
     Dosage: UNK
  12. BENADRYL [Concomitant]
     Active Substance: DIPHENHYDRAMINE HYDROCHLORIDE
     Indication: Premedication
     Dosage: UNK

REACTIONS (12)
  - Polymyalgia rheumatica [Unknown]
  - Cataract [Unknown]
  - Colitis [Unknown]
  - Anxiety [Unknown]
  - Headache [Unknown]
  - Lung disorder [Unknown]
  - Alopecia [Unknown]
  - Dry mouth [Unknown]
  - Incorrect drug administration rate [Unknown]
  - COVID-19 [Recovering/Resolving]
  - Fatigue [Unknown]
  - Nausea [Unknown]

NARRATIVE: CASE EVENT DATE: 20241216
